FAERS Safety Report 10260022 (Version 2)
Quarter: 2014Q4

REPORT INFORMATION
  Report Type: Report from Study
  Country: US (occurrence: US)
  Receive Date: 20140625
  Receipt Date: 20141125
  Transmission Date: 20150528
  Serious: Yes (Other)
  Sender: FDA-Public Use
  Company Number: US-GILEAD-2014-0105642

PATIENT
  Age: 60 Year
  Sex: Male
  Weight: 77.98 kg

DRUGS (2)
  1. SOFOSBUVIR [Suspect]
     Active Substance: SOFOSBUVIR
     Indication: CHRONIC HEPATITIS C
     Dosage: 400 MG, UNK
     Route: 065
     Dates: start: 20140502
  2. SIMEPREVIR [Suspect]
     Active Substance: SIMEPREVIR
     Indication: CHRONIC HEPATITIS C
     Dosage: 150 MG, QD
     Route: 048
     Dates: start: 20140502, end: 201406

REACTIONS (20)
  - Hepatic encephalopathy [Unknown]
  - Fatigue [Unknown]
  - Depression [Unknown]
  - Swelling [Unknown]
  - Skin exfoliation [Unknown]
  - Apathy [Unknown]
  - Pruritus [Unknown]
  - Unevaluable event [Unknown]
  - Jaundice [Unknown]
  - Blood glucose increased [Not Recovered/Not Resolved]
  - Diabetes mellitus [Not Recovered/Not Resolved]
  - Insomnia [Unknown]
  - Nausea [Unknown]
  - Aspartate aminotransferase increased [Unknown]
  - Malaise [Unknown]
  - Hepatic failure [Unknown]
  - Insomnia [Unknown]
  - Blood bilirubin increased [Unknown]
  - Hypersensitivity [Unknown]
  - Off label use [Recovered/Resolved]

NARRATIVE: CASE EVENT DATE: 2014
